FAERS Safety Report 24338850 (Version 3)
Quarter: 2025Q1

REPORT INFORMATION
  Report Type: Spontaneous
  Country: ES (occurrence: ES)
  Receive Date: 20240919
  Receipt Date: 20250224
  Transmission Date: 20250409
  Serious: Yes (Hospitalization)
  Sender: BOEHRINGER INGELHEIM
  Company Number: ES-BoehringerIngelheim-2024-BI-052277

PATIENT
  Age: 52 Year
  Sex: Female
  Weight: 65 kg

DRUGS (1)
  1. NINTEDANIB [Suspect]
     Active Substance: NINTEDANIB
     Indication: Pulmonary fibrosis
     Dates: start: 20240822

REACTIONS (2)
  - Pulmonary embolism [Recovering/Resolving]
  - Temperature regulation disorder [Recovered/Resolved]

NARRATIVE: CASE EVENT DATE: 20240826
